FAERS Safety Report 8486037-4 (Version None)
Quarter: 2012Q3

REPORT INFORMATION
  Report Type: 
  Country: None (occurrence: None)
  Receive Date: 20120703
  Receipt Date: 20120622
  Transmission Date: 20120928
  Serious: Yes (Hospitalization)
  Sender: FDA-Public Use
  Company Number: JP-VERTEX PHARMACEUTICALS INC.-AE-2012-009498

PATIENT
  Age: 69 Year
  Sex: Female

DRUGS (10)
  1. RIBAVIRIN [Concomitant]
     Route: 048
     Dates: start: 20120502, end: 20120605
  2. JUVELA N [Concomitant]
     Route: 048
  3. TELAVIC (TELAPREVIR) [Suspect]
     Route: 048
     Dates: start: 20120327, end: 20120501
  4. TELAVIC (TELAPREVIR) [Suspect]
     Route: 048
     Dates: start: 20120502, end: 20120516
  5. TELAVIC (TELAPREVIR) [Suspect]
     Route: 048
     Dates: start: 20120517, end: 20120523
  6. CINAL [Concomitant]
     Route: 048
  7. TELAVIC (TELAPREVIR) [Suspect]
     Indication: HEPATITIS C
     Route: 048
     Dates: start: 20120322, end: 20120326
  8. RIBAVIRIN [Concomitant]
     Indication: HEPATITIS C
     Route: 048
     Dates: start: 20120322, end: 20120501
  9. PEGINTERFERON ALFA-2B [Concomitant]
     Indication: HEPATITIS C
     Route: 058
     Dates: start: 20120322, end: 20120530
  10. TELAVIC (TELAPREVIR) [Suspect]
     Route: 048
     Dates: start: 20120524, end: 20120605

REACTIONS (1)
  - DIZZINESS [None]
